FAERS Safety Report 8763132 (Version 1)
Quarter: 2012Q4

REPORT INFORMATION
  Report Type: 
  Country: US (occurrence: US)
  Receive Date: 20120830
  Receipt Date: 20120830
  Transmission Date: 20130627
  Serious: No
  Sender: FDA-Public Use
  Company Number: US-BAYER-2012-089781

PATIENT
  Age: 57 Year
  Sex: Female

DRUGS (2)
  1. ULTRAVIST [Suspect]
     Indication: COMPUTERISED TOMOGRAM THORAX
     Dosage: 100 ml, ONCE
  2. ULTRAVIST [Suspect]
     Indication: COMPUTERISED TOMOGRAM ABDOMEN

REACTIONS (3)
  - Injection site urticaria [None]
  - Urticaria [None]
  - Pruritus [None]
